FAERS Safety Report 4314878-3 (Version None)
Quarter: 2004Q1

REPORT INFORMATION
  Report Type: 
  Country: None (occurrence: None)
  Receive Date: 20040310
  Receipt Date: 20040310
  Transmission Date: 20041129
  Serious: Yes (Hospitalization)
  Sender: FDA-Public Use
  Company Number: None

PATIENT
  Age: 50 Year
  Sex: Male

DRUGS (2)
  1. CISPLATIN [Suspect]
     Indication: OESOPHAGEAL CANCER METASTATIC
     Dosage: 30MG/M2 DAYS 1 AND 8 IV
     Route: 042
     Dates: start: 20040120, end: 20040127
  2. IRINOTECAN [Suspect]
     Indication: OESOPHAGEAL CANCER METASTATIC
     Dosage: 55-2 MG /M2 D 1 AND 8 IV
     Route: 042
     Dates: start: 20040120, end: 20040127

REACTIONS (5)
  - DEHYDRATION [None]
  - DIARRHOEA [None]
  - LOOSE STOOLS [None]
  - NAUSEA [None]
  - RETCHING [None]
